FAERS Safety Report 7867203-5 (Version None)
Quarter: 2011Q4

REPORT INFORMATION
  Report Type: 
  Country: None (occurrence: None)
  Receive Date: 20111028
  Receipt Date: 20111025
  Transmission Date: 20120403
  Serious: Yes (Other)
  Sender: FDA-Public Use
  Company Number: AR-GLAXOSMITHKLINE-A0950744A

PATIENT
  Age: 27 Year
  Sex: Female

DRUGS (2)
  1. UNKNOWN [Concomitant]
  2. LAMICTAL [Suspect]
     Indication: BIPOLAR DISORDER
     Dosage: 200MG PER DAY
     Route: 048

REACTIONS (3)
  - APHASIA [None]
  - COGNITIVE DISORDER [None]
  - BRADYPHRENIA [None]
